FAERS Safety Report 18714272 (Version 1)
Quarter: 2021Q1

REPORT INFORMATION
  Report Type: Spontaneous
  Country: US (occurrence: US)
  Receive Date: 20210107
  Receipt Date: 20210107
  Transmission Date: 20210419
  Serious: Yes (Other)
  Sender: FDA-Public Use
  Company Number: US-PFIZER INC-2020521517

PATIENT
  Age: 74 Year
  Sex: Female

DRUGS (1)
  1. DOXYCYCLINE HYCLATE. [Suspect]
     Active Substance: DOXYCYCLINE HYCLATE
     Dosage: UNK

REACTIONS (6)
  - Hypersensitivity pneumonitis [Unknown]
  - Bronchitis [Unknown]
  - Urticaria [Unknown]
  - Lip swelling [Unknown]
  - Swelling [Unknown]
  - Drug hypersensitivity [Unknown]
